FAERS Safety Report 13230140 (Version 1)
Quarter: 2017Q1

REPORT INFORMATION
  Report Type: Spontaneous
  Country: US (occurrence: US)
  Receive Date: 20170213
  Receipt Date: 20170213
  Transmission Date: 20170428
  Serious: Yes (Death)
  Sender: FDA-Public Use
  Company Number: None

PATIENT
  Age: 65 Year
  Sex: Male
  Weight: 74.25 kg

DRUGS (1)
  1. IMURAN [Suspect]
     Active Substance: AZATHIOPRINE
     Indication: EOSINOPHILIC GRANULOMATOSIS WITH POLYANGIITIS
     Dates: start: 20110510, end: 20150901

REACTIONS (5)
  - Choking [None]
  - Vocal cord disorder [None]
  - Pneumonia [None]
  - Sepsis [None]
  - Contusion [None]

NARRATIVE: CASE EVENT DATE: 20160901
